FAERS Safety Report 6349490-8 (Version None)
Quarter: 2009Q3

REPORT INFORMATION
  Report Type: 
  Country: None (occurrence: None)
  Receive Date: 20090911
  Receipt Date: 20090907
  Transmission Date: 20100115
  Serious: Yes (Death)
  Sender: FDA-Public Use
  Company Number: DE-ABBOTT-09P-062-0595481-00

PATIENT
  Sex: Female

DRUGS (9)
  1. HUMIRA [Suspect]
     Indication: RHEUMATOID ARTHRITIS
     Dates: start: 20031201, end: 20061101
  2. PANTOZOL [Concomitant]
     Indication: DRUG USE FOR UNKNOWN INDICATION
  3. DECORTIN [Concomitant]
     Indication: DRUG USE FOR UNKNOWN INDICATION
  4. APROVEL [Concomitant]
     Indication: DRUG USE FOR UNKNOWN INDICATION
  5. DILTAHEXAL [Concomitant]
     Indication: DRUG USE FOR UNKNOWN INDICATION
  6. DIGIMERCK [Concomitant]
     Indication: DRUG USE FOR UNKNOWN INDICATION
  7. DICLOFENAC SODIUM [Concomitant]
     Indication: DRUG USE FOR UNKNOWN INDICATION
  8. TORSEMIDE [Concomitant]
     Indication: DRUG USE FOR UNKNOWN INDICATION
  9. NOVALGIN [Concomitant]
     Indication: DRUG USE FOR UNKNOWN INDICATION

REACTIONS (2)
  - INFECTIVE EXACERBATION OF CHRONIC OBSTRUCTIVE AIRWAYS DISEASE [None]
  - RESPIRATORY FAILURE [None]
